FAERS Safety Report 14033716 (Version 2)
Quarter: 2017Q4

REPORT INFORMATION
  Report Type: Report from Study
  Country: CO (occurrence: CO)
  Receive Date: 20171003
  Receipt Date: 20171018
  Transmission Date: 20180321
  Serious: Yes (Hospitalization)
  Sender: FDA-Public Use
  Company Number: PHHY2017CO143110

PATIENT
  Sex: Male
  Weight: 79.5 kg

DRUGS (4)
  1. ENTRESTO [Suspect]
     Active Substance: SACUBITRIL\VALSARTAN
     Indication: CARDIAC FAILURE
     Dosage: 50 MG, Q12H
     Route: 048
     Dates: start: 20170908
  2. SPIRONOLACTONE. [Concomitant]
     Active Substance: SPIRONOLACTONE
     Indication: PRODUCT USED FOR UNKNOWN INDICATION
     Dosage: UNK
     Route: 065
  3. LEVOTHYROXINE. [Concomitant]
     Active Substance: LEVOTHYROXINE
     Indication: PRODUCT USED FOR UNKNOWN INDICATION
     Dosage: UNK
     Route: 065
  4. FUROSEMIDE. [Concomitant]
     Active Substance: FUROSEMIDE
     Indication: PRODUCT USED FOR UNKNOWN INDICATION
     Dosage: UNK
     Route: 065
     Dates: start: 20171009

REACTIONS (15)
  - Splenomegaly [Unknown]
  - Hepatomegaly [Unknown]
  - Cardiac failure [Unknown]
  - Dyspnoea [Unknown]
  - Pain in extremity [Unknown]
  - Atrial fibrillation [Unknown]
  - Oedema peripheral [Unknown]
  - Quality of life decreased [Unknown]
  - Dysuria [Unknown]
  - Ascites [Unknown]
  - Ventricular hypokinesia [Unknown]
  - Abdominal pain [Unknown]
  - Mitral valve incompetence [Unknown]
  - Ventricular internal diameter abnormal [Unknown]
  - Ejection fraction decreased [Unknown]
